FAERS Safety Report 8761832 (Version 2)
Quarter: 2012Q4

REPORT INFORMATION
  Report Type: 
  Country: US (occurrence: US)
  Receive Date: 20120823
  Receipt Date: 20121228
  Transmission Date: 20130627
  Serious: Yes (Other)
  Sender: FDA-Public Use
  Company Number: 2012P1053755

PATIENT
  Age: 31 Year
  Sex: Male
  Weight: 102.06 kg

DRUGS (3)
  1. LAMOTRIGINE [Suspect]
     Indication: EPILEPSY
     Route: 048
     Dates: start: 201205, end: 20120724
  2. LAMOTRIGINE [Suspect]
     Indication: EPILEPSY
     Route: 048
     Dates: start: 20120726, end: 20120727
  3. MULTIVITAMIN [Concomitant]

REACTIONS (5)
  - Hypersensitivity [Recovered/Resolved]
  - Weight increased [Recovered/Resolved]
  - Fluid retention [Recovered/Resolved]
  - Grand mal convulsion [Recovered/Resolved]
  - Product substitution issue [Recovered/Resolved]
